FAERS Safety Report 14814649 (Version 3)
Quarter: 2018Q2

REPORT INFORMATION
  Report Type: Spontaneous
  Country: GR (occurrence: GR)
  Receive Date: 20180426
  Receipt Date: 20180613
  Transmission Date: 20180711
  Serious: Yes (Other)
  Sender: FDA-Public Use
  Company Number: GR-009507513-1804GRC009839

PATIENT
  Age: 88 Year
  Sex: Male

DRUGS (4)
  1. DILATREND [Concomitant]
     Active Substance: CARVEDILOL
     Dosage: UNK
  2. SINTROM [Concomitant]
     Active Substance: ACENOCOUMAROL
     Dosage: UNK
  3. LASIX [Concomitant]
     Active Substance: FUROSEMIDE
     Dosage: UNK
  4. AERIUS [Suspect]
     Active Substance: DESLORATADINE
     Dosage: UNK, ONCE; IN TOTAL
     Route: 048

REACTIONS (1)
  - Cardiac failure [Unknown]
